FAERS Safety Report 16733830 (Version 1)
Quarter: 2019Q3

REPORT INFORMATION
  Report Type: Spontaneous
  Country: CA (occurrence: CA)
  Receive Date: 20190823
  Receipt Date: 20190823
  Transmission Date: 20191005
  Serious: Yes (Hospitalization, Other)
  Sender: FDA-Public Use
  Company Number: CA-SUN PHARMACEUTICAL INDUSTRIES LTD-2019R1-218545

PATIENT
  Age: 62 Year
  Sex: Female

DRUGS (1)
  1. VENLAFAXINE [Suspect]
     Active Substance: VENLAFAXINE HYDROCHLORIDE
     Indication: DIZZINESS
     Dosage: 75 MILLIGRAM, QD
     Route: 065

REACTIONS (5)
  - Cardiac fibrillation [Recovered/Resolved]
  - Drug effective for unapproved indication [Unknown]
  - Nausea [Recovered/Resolved]
  - Cardiac arrest [Recovered/Resolved]
  - Withdrawal syndrome [Recovered/Resolved]
